FAERS Safety Report 5940730-3 (Version None)
Quarter: 2008Q4

REPORT INFORMATION
  Report Type: 
  Country: None (occurrence: None)
  Receive Date: 20081104
  Receipt Date: 20081027
  Transmission Date: 20090506
  Serious: Yes (Hospitalization, Other)
  Sender: FDA-Public Use
  Company Number: US-ELI_LILLY_AND_COMPANY-US200810006643

PATIENT
  Sex: Male

DRUGS (6)
  1. HUMALOG [Suspect]
     Indication: TYPE 2 DIABETES MELLITUS
     Dosage: 8 U, UNK
     Dates: start: 20080901
  2. HUMALOG [Suspect]
     Dosage: UNK, UNK
  3. HUMALOG [Suspect]
  4. LANTUS [Concomitant]
     Indication: DIABETES MELLITUS
     Dosage: 15 U, EACH EVENING
  5. GLIPIZIDE [Concomitant]
     Indication: DIABETES MELLITUS
     Dosage: UNK, UNK
     Dates: end: 20080901
  6. AVANDIA [Concomitant]
     Indication: DIABETES MELLITUS
     Dates: end: 20080901

REACTIONS (8)
  - BLOOD GLUCOSE DECREASED [None]
  - BLOOD GLUCOSE INCREASED [None]
  - CELLULITIS [None]
  - HOSPITALISATION [None]
  - HYPOGLYCAEMIA [None]
  - PYREXIA [None]
  - RENAL FAILURE ACUTE [None]
  - RENAL IMPAIRMENT [None]
